FAERS Safety Report 7323162-5 (Version None)
Quarter: 2011Q1

REPORT INFORMATION
  Report Type: 
  Country: None (occurrence: None)
  Receive Date: 20110216
  Receipt Date: 20110203
  Transmission Date: 20110831
  Serious: Yes (Hospitalization)
  Sender: FDA-Public Use
  Company Number: UTC-005109

PATIENT
  Age: 30 Year
  Sex: Male
  Weight: 67.3 kg

DRUGS (3)
  1. REVATIO [Concomitant]
  2. REMODULIN [Suspect]
     Indication: PULMONARY ARTERIAL HYPERTENSION
     Dosage: 216 UG/KG (0.15 UG/KG,1 IN 1 MIN),SUBCUTANEOUS
     Route: 058
     Dates: start: 20080505
  3. TRACLEER [Concomitant]

REACTIONS (2)
  - OEDEMA PERIPHERAL [None]
  - FLUID RETENTION [None]
